FAERS Safety Report 8899473 (Version 2)
Quarter: 2012Q4

REPORT INFORMATION
  Report Type: 
  Country: US (occurrence: US)
  Receive Date: 20121109
  Receipt Date: 20121116
  Transmission Date: 20130627
  Serious: Yes (Hospitalization)
  Sender: FDA-Public Use
  Company Number: US-JNJFOC-20121101448

PATIENT
  Sex: Female
  Weight: 1.67 kg

DRUGS (3)
  1. NICORETTE POLACRILEX GUM [Suspect]
     Indication: FOETAL EXPOSURE DURING PREGNANCY
     Route: 064
     Dates: start: 20120807
  2. NICOTINE POLACRILEX GUM 2 MG [Suspect]
     Indication: FOETAL EXPOSURE DURING PREGNANCY
     Route: 064
     Dates: start: 2012
  3. NICODERM CQ [Suspect]
     Indication: FOETAL EXPOSURE DURING PREGNANCY
     Route: 064

REACTIONS (3)
  - Adverse event [Unknown]
  - Maternal drugs affecting foetus [None]
  - Hospitalisation [None]
